FAERS Safety Report 12386932 (Version 2)
Quarter: 2016Q2

REPORT INFORMATION
  Report Type: Report from Study
  Country: TR (occurrence: TR)
  Receive Date: 20160519
  Receipt Date: 20160610
  Transmission Date: 20160815
  Serious: Yes (Death, Hospitalization)
  Sender: FDA-Public Use
  Company Number: TR-ABBVIE-16P-161-1616327-00

PATIENT
  Age: 71 Year
  Sex: Male
  Weight: 75 kg

DRUGS (6)
  1. KINZY [Concomitant]
     Indication: PROPHYLAXIS
  2. DUODOPA [Suspect]
     Active Substance: CARBIDOPA\LEVODOPA
     Indication: PARKINSON^S DISEASE
     Dosage: MORNING DOSE:6.7ML, CONTINUOUS DOSE:8ML, EXTRA DOSE:1.5ML
     Route: 050
     Dates: start: 20140131
  3. MADOPAR HBS [Concomitant]
     Active Substance: BENSERAZIDE HYDROCHLORIDE\LEVODOPA
     Indication: PARKINSON^S DISEASE
     Route: 048
     Dates: start: 2000
  4. PK MERZ [Concomitant]
     Active Substance: AMANTADINE SULFATE
     Indication: PARKINSON^S DISEASE
     Route: 048
     Dates: start: 2004
  5. KINZY [Concomitant]
     Indication: BLADDER SPASM
     Route: 048
     Dates: start: 2013
  6. VASOSERC [Concomitant]
     Indication: DIZZINESS
     Route: 048
     Dates: start: 2013

REACTIONS (4)
  - Loss of consciousness [Not Recovered/Not Resolved]
  - Brain hypoxia [Fatal]
  - Respiratory arrest [Not Recovered/Not Resolved]
  - Myocardial infarction [Recovered/Resolved]

NARRATIVE: CASE EVENT DATE: 20160427
